FAERS Safety Report 9774943 (Version 1)
Quarter: 2013Q4

REPORT INFORMATION
  Report Type: Spontaneous
  Country: US (occurrence: US)
  Receive Date: 20131220
  Receipt Date: 20131220
  Transmission Date: 20140711
  Serious: No
  Sender: FDA-Public Use
  Company Number: US-GLAXOSMITHKLINE-A1021663A

PATIENT
  Age: 73 Year
  Sex: Female

DRUGS (4)
  1. AVODART [Suspect]
     Route: 048
  2. TOPROL [Concomitant]
  3. ASPIRIN [Concomitant]
  4. NORVASC [Concomitant]

REACTIONS (6)
  - Ocular hyperaemia [Not Recovered/Not Resolved]
  - Lacrimation increased [Unknown]
  - Eyelid margin crusting [Unknown]
  - Rhinorrhoea [Unknown]
  - Pruritus [Unknown]
  - Scab [Unknown]
